FAERS Safety Report 11103093 (Version 1)
Quarter: 2015Q2

REPORT INFORMATION
  Report Type: Spontaneous
  Country: US (occurrence: None)
  Receive Date: 20150508
  Receipt Date: 20150508
  Transmission Date: 20150821
  Serious: No
  Sender: FDA-Public Use
  Company Number: None

PATIENT
  Age: 62 Year
  Sex: Male

DRUGS (1)
  1. BRIMONIDINE [Suspect]
     Active Substance: BRIMONIDINE\BRIMONIDINE TARTRATE
     Indication: OCULAR HYPERTENSION
     Dosage: 1 DROPS TID EYE
     Route: 047
     Dates: start: 20150323, end: 20150401

REACTIONS (2)
  - Dermatitis contact [None]
  - Conjunctivitis allergic [None]

NARRATIVE: CASE EVENT DATE: 20150401
